FAERS Safety Report 5416724-3 (Version None)
Quarter: 2007Q3

REPORT INFORMATION
  Report Type: 
  Country: None (occurrence: None)
  Receive Date: 20070816
  Receipt Date: 20070813
  Transmission Date: 20080115
  Serious: Yes (Other)
  Sender: FDA-Public Use
  Company Number: A0670274A

PATIENT
  Age: 39 Year
  Sex: Female

DRUGS (1)
  1. DEXEDRINE [Suspect]
     Dosage: 10MG THREE TIMES PER DAY
     Route: 048

REACTIONS (2)
  - FATIGUE [None]
  - PNEUMONIA [None]
